FAERS Safety Report 25281807 (Version 1)
Quarter: 2025Q2

REPORT INFORMATION
  Report Type: Spontaneous
  Country: AU (occurrence: AU)
  Receive Date: 20250508
  Receipt Date: 20250508
  Transmission Date: 20250716
  Serious: Yes (Other)
  Sender: ACCORD
  Company Number: AU-Accord-479203

PATIENT
  Sex: Male

DRUGS (1)
  1. OXALIPLATIN [Suspect]
     Active Substance: OXALIPLATIN
     Indication: Product used for unknown indication
     Dates: start: 20250317, end: 20250317

REACTIONS (3)
  - Erythema [Unknown]
  - Throat irritation [Unknown]
  - Pruritus [Unknown]

NARRATIVE: CASE EVENT DATE: 20250317
